FAERS Safety Report 12410033 (Version 2)
Quarter: 2017Q2

REPORT INFORMATION
  Report Type: Report from Study
  Country: PT (occurrence: PT)
  Receive Date: 20160527
  Receipt Date: 20170531
  Transmission Date: 20170830
  Serious: Yes (Hospitalization, Other)
  Sender: FDA-Public Use
  Company Number: PT-AMGEN-PRTNI2016066226

PATIENT
  Age: 69 Year
  Sex: Female

DRUGS (5)
  1. ESOMEPRAZOL [Concomitant]
     Active Substance: ESOMEPRAZOLE
     Dosage: 20 MG, QD
     Route: 048
  2. PREGABALIN. [Concomitant]
     Active Substance: PREGABALIN
     Dosage: 100 MG, 12/12H
     Route: 048
  3. DEXAMETHASONE. [Suspect]
     Active Substance: DEXAMETHASONE
     Indication: PLASMA CELL MYELOMA
     Dosage: 20 MG, QWK
     Route: 048
     Dates: start: 20160201
  4. CARFILZOMIB [Suspect]
     Active Substance: CARFILZOMIB
     Indication: PLASMA CELL MYELOMA
     Dosage: 56 MG/M2, UNK
     Route: 042
     Dates: start: 20160201, end: 2016
  5. CARFILZOMIB [Suspect]
     Active Substance: CARFILZOMIB
     Dosage: 45 MG/M2, UNK
     Route: 042
     Dates: start: 20160404

REACTIONS (2)
  - Acute kidney injury [Recovered/Resolved]
  - Pneumonia [Recovered/Resolved]

NARRATIVE: CASE EVENT DATE: 20160413
